FAERS Safety Report 11570451 (Version 1)
Quarter: 2015Q3

REPORT INFORMATION
  Report Type: Spontaneous
  Country: US (occurrence: US)
  Receive Date: 20150929
  Receipt Date: 20150929
  Transmission Date: 20151125
  Serious: Yes (Other)
  Sender: FDA-Public Use
  Company Number: US-CELGENE-USA-2015093838

PATIENT

DRUGS (3)
  1. REVLIMID [Suspect]
     Active Substance: LENALIDOMIDE
     Indication: PLASMA CELL MYELOMA
     Dosage: 25 MILLIGRAM
     Route: 048
  2. IXAZOMIB [Suspect]
     Active Substance: IXAZOMIB
     Indication: PLASMA CELL MYELOMA
     Route: 065
  3. DEXAMETHASONE. [Suspect]
     Active Substance: DEXAMETHASONE
     Indication: PLASMA CELL MYELOMA
     Route: 065

REACTIONS (21)
  - Drug hypersensitivity [Unknown]
  - Fatigue [Unknown]
  - Angina pectoris [Unknown]
  - Hypokalaemia [Unknown]
  - Pneumonia [Unknown]
  - Skin disorder [Unknown]
  - Spinal cord compression [Unknown]
  - Decreased appetite [Unknown]
  - Nausea [Unknown]
  - Blood creatinine increased [Unknown]
  - Renal impairment [Unknown]
  - Anaemia [Unknown]
  - Vomiting [Unknown]
  - Platelet count decreased [Unknown]
  - Insomnia [Unknown]
  - Neutropenia [Unknown]
  - Thrombocytopenia [Unknown]
  - Diarrhoea [Unknown]
  - Neuropathy peripheral [Unknown]
  - Plasmacytoma [Unknown]
  - Palpitations [Unknown]
